FAERS Safety Report 9570618 (Version 2)
Quarter: 2013Q4

REPORT INFORMATION
  Report Type: Spontaneous
  Country: FR (occurrence: FR)
  Receive Date: 20131001
  Receipt Date: 20131001
  Transmission Date: 20140711
  Serious: Yes (Death, Other)
  Sender: FDA-Public Use
  Company Number: FR-ROCHE-1274977

PATIENT
  Age: 58 Year
  Sex: Female

DRUGS (3)
  1. ZELBORAF [Suspect]
     Indication: METASTATIC MALIGNANT MELANOMA
     Route: 048
     Dates: start: 20130528, end: 20130909
  2. OLMETEC [Concomitant]
     Indication: HYPERTENSION
     Dosage: FOR SEVERAL MONTHS
     Route: 048
  3. IXPRIM [Concomitant]
     Indication: NECK PAIN
     Dosage: FOR SEVERAL MONTHS
     Route: 048

REACTIONS (4)
  - Vomiting [Fatal]
  - Nausea [Fatal]
  - General physical health deterioration [Fatal]
  - Headache [Unknown]
